FAERS Safety Report 8099321-3 (Version None)
Quarter: 2012Q1

REPORT INFORMATION
  Report Type: 
  Country: None (occurrence: None)
  Receive Date: 20120126
  Receipt Date: 20120118
  Transmission Date: 20120608
  Serious: Yes (Hospitalization, Other)
  Sender: FDA-Public Use
  Company Number: 1000026148

PATIENT
  Age: 69 Year
  Sex: Female

DRUGS (15)
  1. FUROSEMIDE [Concomitant]
  2. MIRTAZAPINE [Concomitant]
  3. FORMOTEROL FUMARATE [Suspect]
  4. IPRATROPIUM BROMIDE [Concomitant]
  5. QUAR (BECLOMETASONE DIPROPIONATE) (BELCOMETASONE DIPROPRIONATE) [Concomitant]
  6. CARBOCISTEINE [Concomitant]
  7. THEOPHYLLINE [Concomitant]
  8. AZITHROMYCIN [Concomitant]
  9. CYCLIZINE [Concomitant]
  10. CALCICHEW (CALCIUM CARBONATE) (CALCIUM CARBONATE) [Concomitant]
  11. OMEPRAZOLE [Concomitant]
  12. ROFLUMILAST [Suspect]
     Indication: CHRONIC OBSTRUCTIVE PULMONARY DISEASE
     Dosage: 500 MCG (500 MCG, 1 N 1 D), ORAL
     Route: 048
     Dates: start: 20110901, end: 20111117
  13. DIAZEPAM [Concomitant]
  14. PREDNISOLONE [Concomitant]
  15. ALBUTEROL [Concomitant]

REACTIONS (4)
  - CHRONIC OBSTRUCTIVE PULMONARY DISEASE [None]
  - CONDITION AGGRAVATED [None]
  - PANCREATITIS ACUTE [None]
  - PNEUMONIA [None]
